FAERS Safety Report 24440440 (Version 5)
Quarter: 2025Q3

REPORT INFORMATION
  Report Type: Spontaneous
  Country: EU (occurrence: EU)
  Receive Date: 20241016
  Receipt Date: 20250810
  Transmission Date: 20251020
  Serious: Yes (Other)
  Sender: ALEXION PHARMACEUTICALS
  Company Number: None

PATIENT
  Age: 47 Year
  Sex: Male
  Weight: 87 kg

DRUGS (1)
  1. NEXIUM [Suspect]
     Active Substance: ESOMEPRAZOLE MAGNESIUM
     Indication: Abdominal pain
     Dosage: 1X DAILY IN THE MORNING ON AN EMPTY STOMACH
     Dates: start: 20240814, end: 20240926

REACTIONS (3)
  - Mood altered [Recovered/Resolved]
  - Anxiety [Recovered/Resolved]
  - Vision blurred [Recovered/Resolved]

NARRATIVE: CASE EVENT DATE: 20240909
